FAERS Safety Report 5995082-X (Version None)
Quarter: 2008Q4

REPORT INFORMATION
  Report Type: 
  Country: None (occurrence: None)
  Receive Date: 20081210
  Receipt Date: 20081203
  Transmission Date: 20090506
  Serious: Yes (Hospitalization)
  Sender: FDA-Public Use
  Company Number: POMP-1000415

PATIENT
  Age: 3 Year
  Sex: Female

DRUGS (1)
  1. MYOZYME [Suspect]
     Indication: GLYCOGEN STORAGE DISEASE TYPE II
     Dosage: 20 MG/KG, Q2W, INTRAVENOUS
     Route: 042
     Dates: start: 20060722

REACTIONS (8)
  - CARDIAC FAILURE [None]
  - CHOKING [None]
  - COUGH [None]
  - HYPOTENSION [None]
  - INFLUENZA [None]
  - INFUSION RELATED REACTION [None]
  - PYREXIA [None]
  - VIRAL INFECTION [None]
